FAERS Safety Report 6192439-1 (Version None)
Quarter: 2009Q2

REPORT INFORMATION
  Report Type: 
  Country: None (occurrence: None)
  Receive Date: 20090518
  Receipt Date: 20090416
  Transmission Date: 20091009
  Serious: No
  Sender: FDA-Public Use
  Company Number: PR-BAYER-200918620NA

PATIENT
  Age: 79 Year
  Sex: Male

DRUGS (4)
  1. AVELOX [Suspect]
     Indication: BRONCHITIS
     Route: 048
  2. MICARDIS [Concomitant]
  3. PRILOSEC [Concomitant]
  4. SINEMET [Concomitant]

REACTIONS (4)
  - ASTHENIA [None]
  - GAIT DISTURBANCE [None]
  - NAUSEA [None]
  - VERTIGO [None]
